FAERS Safety Report 16642635 (Version 1)
Quarter: 2019Q3

REPORT INFORMATION
  Report Type: Spontaneous
  Country: US (occurrence: US)
  Receive Date: 20190729
  Receipt Date: 20190729
  Transmission Date: 20191004
  Serious: No
  Sender: FDA-Public Use
  Company Number: US-PFIZER INC-2019318713

PATIENT

DRUGS (2)
  1. HYDROCORTISONE ACETATE. [Suspect]
     Active Substance: HYDROCORTISONE ACETATE
     Indication: ECZEMA
     Dosage: UNK
  2. CLOBETASOL [Suspect]
     Active Substance: CLOBETASOL
     Indication: ECZEMA
     Dosage: UNK

REACTIONS (1)
  - Drug ineffective [Unknown]
